FAERS Safety Report 5716158-8 (Version None)
Quarter: 2008Q2

REPORT INFORMATION
  Report Type: 
  Country: None (occurrence: None)
  Receive Date: 20080424
  Receipt Date: 20080418
  Transmission Date: 20081010
  Serious: Yes (Death, Other)
  Sender: FDA-Public Use
  Company Number: PHEH2007US13172

PATIENT
  Age: 42 Year
  Sex: Male
  Weight: 126.53 kg

DRUGS (6)
  1. CLOZARIL [Suspect]
     Indication: SCHIZOAFFECTIVE DISORDER
     Dosage: 300 MG, TID
     Route: 048
     Dates: start: 19990101, end: 20070716
  2. DALMANE [Concomitant]
     Dosage: 30 MG, UNK
  3. TOPAMAX [Concomitant]
     Indication: MANIA
     Dosage: 100 MG, TID
  4. KLONOPIN [Concomitant]
     Indication: ANXIETY
  5. ABILIFY [Concomitant]
  6. TRAZODONE HCL [Concomitant]
     Indication: INSOMNIA
     Dosage: 100 MG, UNK

REACTIONS (6)
  - BIPOLAR I DISORDER [None]
  - BLOOD GLUCOSE INCREASED [None]
  - DEATH [None]
  - DELUSION [None]
  - INSOMNIA [None]
  - SPEECH DISORDER [None]
